FAERS Safety Report 6842414-6 (Version None)
Quarter: 2010Q3

REPORT INFORMATION
  Report Type: 
  Country: None (occurrence: None)
  Receive Date: 20100714
  Receipt Date: 20070726
  Transmission Date: 20110219
  Serious: No
  Sender: FDA-Public Use
  Company Number: US-PFIZER INC-2007063999

PATIENT
  Sex: Male

DRUGS (7)
  1. CHANTIX [Suspect]
     Indication: SMOKING CESSATION THERAPY
     Route: 048
     Dates: start: 20070502, end: 20070528
  2. ALL OTHER THERAPEUTIC PRODUCTS [Concomitant]
  3. PRAVASTATIN [Concomitant]
  4. ISOSORBIDE [Concomitant]
  5. SPIRIVA [Concomitant]
  6. FLOVENT [Concomitant]
  7. OTHER RESPIRATORY SYSTEM PRODUCTS [Concomitant]
     Route: 055

REACTIONS (3)
  - ABNORMAL DREAMS [None]
  - CHEST DISCOMFORT [None]
  - INSOMNIA [None]
